FAERS Safety Report 10164702 (Version 2)
Quarter: 2014Q2

REPORT INFORMATION
  Report Type: Spontaneous
  Country: US (occurrence: US)
  Receive Date: 20140510
  Receipt Date: 20140510
  Transmission Date: 20141212
  Serious: No
  Sender: FDA-Public Use
  Company Number: US-BRISTOL-MYERS SQUIBB COMPANY-18581728

PATIENT
  Age: 42 Year
  Sex: Female

DRUGS (2)
  1. BYETTA PEN DISPOSABLE [Suspect]
     Route: 058
     Dates: start: 201207
  2. BYETTA PEN DISPOSABLE [Suspect]
     Route: 058
     Dates: start: 201301

REACTIONS (3)
  - Nausea [Unknown]
  - Drug dose omission [Unknown]
  - Vomiting [Unknown]
